FAERS Safety Report 6300604-5 (Version None)
Quarter: 2009Q3

REPORT INFORMATION
  Report Type: 
  Country: None (occurrence: None)
  Receive Date: 20090806
  Receipt Date: 20090728
  Transmission Date: 20100115
  Serious: No
  Sender: FDA-Public Use
  Company Number: US-ABBOTT-09P-163-0588183-00

PATIENT
  Sex: Male
  Weight: 83.99 kg

DRUGS (4)
  1. DEPAKOTE ER [Suspect]
     Indication: AFFECTIVE DISORDER
     Route: 048
     Dates: start: 20090713
  2. ALBUTEROL [Concomitant]
     Indication: CHRONIC OBSTRUCTIVE PULMONARY DISEASE
     Route: 055
  3. XANAX [Concomitant]
     Indication: ANXIETY
     Route: 048
  4. ALBUTEROL [Concomitant]
     Route: 055

REACTIONS (1)
  - ABNORMAL DREAMS [None]
